FAERS Safety Report 12331677 (Version 1)
Quarter: 2016Q2

REPORT INFORMATION
  Report Type: Spontaneous
  Country: US (occurrence: None)
  Receive Date: 20160503
  Receipt Date: 20160503
  Transmission Date: 20160815
  Serious: No
  Sender: FDA-Public Use
  Company Number: None

PATIENT
  Age: 54 Year
  Sex: Female
  Weight: 83.92 kg

DRUGS (12)
  1. SELENIUM [Concomitant]
     Active Substance: SELENIUM
  2. B2 [Concomitant]
  3. B6 [Concomitant]
     Active Substance: PYRIDOXINE HYDROCHLORIDE
  4. VITAMIN B12 [Concomitant]
     Active Substance: CYANOCOBALAMIN
  5. FATS [Concomitant]
     Active Substance: LIPOSYN (R) INTRAVENOUS FAT EMULSION
  6. CIPROFLOXACIN HCL 500MG TABLET [Suspect]
     Active Substance: CIPROFLOXACIN HYDROCHLORIDE
     Indication: URINARY TRACT INFECTION
     Route: 048
     Dates: start: 20160425, end: 20160426
  7. MULTI VITAMIN [Concomitant]
     Active Substance: VITAMINS
  8. MAGNESIUM [Concomitant]
     Active Substance: MAGNESIUM
  9. PROBIOTICS [Concomitant]
     Active Substance: PROBIOTICS NOS
  10. NATURE-THROID [Concomitant]
     Active Substance: THYROID, PORCINE
  11. ZINC VIT D [Concomitant]
  12. TRACE MINERALS [Concomitant]

REACTIONS (16)
  - Insomnia [None]
  - Palpitations [None]
  - Abdominal discomfort [None]
  - Dyspepsia [None]
  - Arthralgia [None]
  - Heart rate increased [None]
  - Eructation [None]
  - Feeling abnormal [None]
  - Feeling jittery [None]
  - Dizziness [None]
  - Head discomfort [None]
  - Back pain [None]
  - Diarrhoea [None]
  - Fatigue [None]
  - Disturbance in attention [None]
  - Anxiety [None]

NARRATIVE: CASE EVENT DATE: 20160425
